FAERS Safety Report 12153920 (Version 13)
Quarter: 2017Q2

REPORT INFORMATION
  Report Type: Report from Study
  Country: TR (occurrence: TR)
  Receive Date: 20160307
  Receipt Date: 20170504
  Transmission Date: 20170829
  Serious: Yes (Hospitalization)
  Sender: FDA-Public Use
  Company Number: TR-ROCHE-1397847

PATIENT
  Age: 70 Year
  Sex: Male
  Weight: 74 kg

DRUGS (148)
  1. FLUDARABINE [Suspect]
     Active Substance: FLUDARABINE PHOSPHATE
     Route: 042
     Dates: start: 20140219, end: 20140219
  2. FLUDARABINE [Suspect]
     Active Substance: FLUDARABINE PHOSPHATE
     Route: 042
     Dates: start: 20140321, end: 20140321
  3. FLUDARABINE [Suspect]
     Active Substance: FLUDARABINE PHOSPHATE
     Route: 042
     Dates: start: 20140527, end: 20140527
  4. FLUDARABINE [Suspect]
     Active Substance: FLUDARABINE PHOSPHATE
     Route: 042
     Dates: start: 20140529, end: 20140529
  5. FLUDARABINE [Suspect]
     Active Substance: FLUDARABINE PHOSPHATE
     Route: 042
     Dates: start: 20140625, end: 20140625
  6. CYCLOPHOSPHAMIDE. [Suspect]
     Active Substance: CYCLOPHOSPHAMIDE
     Route: 042
     Dates: start: 20140123, end: 20140123
  7. ASPIRIN. [Concomitant]
     Active Substance: ASPIRIN
     Indication: CORONARY ARTERY DISEASE
     Route: 048
     Dates: start: 2006, end: 20140923
  8. DEKORT [Concomitant]
     Active Substance: DEXAMETHASONE
     Route: 042
     Dates: start: 20140123, end: 20140123
  9. ULCURAN [Concomitant]
     Route: 042
     Dates: start: 20140123, end: 20140123
  10. AVIL [Concomitant]
     Active Substance: PHENIRAMINE
     Indication: PROPHYLAXIS
     Route: 042
     Dates: start: 20140122, end: 20140122
  11. AVIL [Concomitant]
     Active Substance: PHENIRAMINE
     Route: 042
     Dates: start: 20140123, end: 20140123
  12. KYTRIL [Concomitant]
     Active Substance: GRANISETRON HYDROCHLORIDE
     Route: 042
     Dates: start: 20140205, end: 20140205
  13. KYTRIL [Concomitant]
     Active Substance: GRANISETRON HYDROCHLORIDE
     Route: 042
     Dates: start: 20140129, end: 20140129
  14. KYTRIL [Concomitant]
     Active Substance: GRANISETRON HYDROCHLORIDE
     Route: 048
     Dates: start: 20140527, end: 20140527
  15. METEOSPASMYL [Concomitant]
     Active Substance: ALVERINE CITRATE\DIMETHICONE
     Route: 048
     Dates: start: 20140125, end: 20140125
  16. MUPIDERM [Concomitant]
     Active Substance: MUPIROCIN
     Route: 065
     Dates: start: 20150604, end: 20150605
  17. ACYCLOVIR. [Concomitant]
     Active Substance: ACYCLOVIR
     Route: 042
     Dates: start: 20150521, end: 20150526
  18. METEOSPASMYL [Concomitant]
     Active Substance: ALVERINE CITRATE\DIMETHICONE
     Route: 048
     Dates: start: 20140125, end: 20140125
  19. OBINUTUZUMAB [Suspect]
     Active Substance: OBINUTUZUMAB
     Indication: CHRONIC LYMPHOCYTIC LEUKAEMIA
     Route: 042
     Dates: start: 20140122, end: 20140122
  20. OBINUTUZUMAB [Suspect]
     Active Substance: OBINUTUZUMAB
     Route: 042
     Dates: start: 20140624, end: 20140624
  21. FLUDARABINE [Suspect]
     Active Substance: FLUDARABINE PHOSPHATE
     Route: 042
     Dates: start: 20140417, end: 20140417
  22. FLUDARABINE [Suspect]
     Active Substance: FLUDARABINE PHOSPHATE
     Route: 042
     Dates: start: 20140418, end: 20140418
  23. CYCLOPHOSPHAMIDE. [Suspect]
     Active Substance: CYCLOPHOSPHAMIDE
     Route: 042
     Dates: start: 20140124, end: 20140124
  24. CYCLOPHOSPHAMIDE. [Suspect]
     Active Substance: CYCLOPHOSPHAMIDE
     Route: 042
     Dates: start: 20140320, end: 20140320
  25. VASTAREL [Concomitant]
     Active Substance: TRIMETAZIDINE DIHYDROCHLORIDE
     Indication: CORONARY ARTERY DISEASE
     Route: 048
     Dates: start: 2006
  26. PERFALGAN [Concomitant]
     Active Substance: ACETAMINOPHEN
     Route: 042
     Dates: start: 20140129, end: 20140129
  27. PERFALGAN [Concomitant]
     Active Substance: ACETAMINOPHEN
     Route: 042
     Dates: start: 20140319, end: 20140319
  28. DEKORT [Concomitant]
     Active Substance: DEXAMETHASONE
     Route: 042
     Dates: start: 20140527, end: 20140527
  29. ULCURAN [Concomitant]
     Route: 042
     Dates: start: 20140129, end: 20140129
  30. ULCURAN [Concomitant]
     Route: 042
     Dates: start: 20140416, end: 20140416
  31. KYTRIL [Concomitant]
     Active Substance: GRANISETRON HYDROCHLORIDE
     Route: 042
     Dates: start: 20140219, end: 20140219
  32. KYTRIL [Concomitant]
     Active Substance: GRANISETRON HYDROCHLORIDE
     Route: 042
     Dates: start: 20140624, end: 20140624
  33. CONTRAMAL [Concomitant]
     Active Substance: TRAMADOL HYDROCHLORIDE
     Route: 042
     Dates: start: 20140124, end: 20140124
  34. CONTRAMAL [Concomitant]
     Active Substance: TRAMADOL HYDROCHLORIDE
     Route: 048
     Dates: start: 20150528, end: 20150528
  35. MIKOSTATIN [Concomitant]
     Active Substance: NYSTATIN
     Route: 048
     Dates: start: 20140602, end: 20140614
  36. BELOC (TURKEY) [Concomitant]
     Indication: CORONARY ARTERY DISEASE
     Route: 048
     Dates: start: 20140509
  37. XENETIX [Concomitant]
     Active Substance: IOBITRIDOL
     Route: 042
     Dates: start: 20141112, end: 20141112
  38. OMNIPAQUE [Concomitant]
     Active Substance: IOHEXOL
     Route: 042
     Dates: start: 20150504, end: 20150504
  39. DIAFORMIN [Concomitant]
     Active Substance: METFORMIN HYDROCHLORIDE
     Route: 065
  40. PAROL [Concomitant]
     Active Substance: ACETAMINOPHEN
     Route: 048
     Dates: start: 20161123
  41. OBINUTUZUMAB [Suspect]
     Active Substance: OBINUTUZUMAB
     Route: 042
     Dates: start: 20140219, end: 20140219
  42. CYCLOPHOSPHAMIDE. [Suspect]
     Active Substance: CYCLOPHOSPHAMIDE
     Route: 042
     Dates: start: 20140624, end: 20140624
  43. PERFALGAN [Concomitant]
     Active Substance: ACETAMINOPHEN
     Route: 042
     Dates: start: 20140123, end: 20140123
  44. PERFALGAN [Concomitant]
     Active Substance: ACETAMINOPHEN
     Route: 042
     Dates: start: 20140624, end: 20140624
  45. DEKORT [Concomitant]
     Active Substance: DEXAMETHASONE
     Route: 042
     Dates: start: 20140319, end: 20140319
  46. ULCURAN [Concomitant]
     Indication: PROPHYLAXIS
     Route: 042
     Dates: start: 20140122, end: 20140122
  47. ULCURAN [Concomitant]
     Route: 042
     Dates: start: 20140624, end: 20140624
  48. AVIL [Concomitant]
     Active Substance: PHENIRAMINE
     Route: 042
     Dates: start: 20140129, end: 20140129
  49. AVIL [Concomitant]
     Active Substance: PHENIRAMINE
     Route: 042
     Dates: start: 20140219, end: 20140219
  50. AVIL [Concomitant]
     Active Substance: PHENIRAMINE
     Route: 042
     Dates: start: 20140416, end: 20140416
  51. AVIL [Concomitant]
     Active Substance: PHENIRAMINE
     Route: 042
     Dates: start: 20140624, end: 20140624
  52. KYTRIL [Concomitant]
     Active Substance: GRANISETRON HYDROCHLORIDE
     Indication: PROPHYLAXIS
     Route: 042
     Dates: start: 20140122, end: 20140122
  53. KYTRIL [Concomitant]
     Active Substance: GRANISETRON HYDROCHLORIDE
     Route: 042
     Dates: start: 20140416, end: 20140416
  54. FLUDARABINE [Suspect]
     Active Substance: FLUDARABINE PHOSPHATE
     Route: 042
     Dates: start: 20140320, end: 20140320
  55. FLUDARABINE [Suspect]
     Active Substance: FLUDARABINE PHOSPHATE
     Route: 042
     Dates: start: 20140624, end: 20140624
  56. CYCLOPHOSPHAMIDE. [Suspect]
     Active Substance: CYCLOPHOSPHAMIDE
     Indication: CHRONIC LYMPHOCYTIC LEUKAEMIA
     Route: 042
     Dates: start: 20140122, end: 20140122
  57. CYCLOPHOSPHAMIDE. [Suspect]
     Active Substance: CYCLOPHOSPHAMIDE
     Route: 042
     Dates: start: 20140319, end: 20140319
  58. CYCLOPHOSPHAMIDE. [Suspect]
     Active Substance: CYCLOPHOSPHAMIDE
     Route: 042
     Dates: start: 20140529, end: 20140529
  59. MONOKET [Concomitant]
     Active Substance: ISOSORBIDE MONONITRATE
     Indication: CORONARY ARTERY DISEASE
     Route: 048
     Dates: start: 2006
  60. KYTRIL [Concomitant]
     Active Substance: GRANISETRON HYDROCHLORIDE
     Route: 048
     Dates: start: 20140624, end: 20140624
  61. LANTUS SOLOSTAR [Concomitant]
     Active Substance: INSULIN GLARGINE
     Route: 030
     Dates: start: 20140124, end: 20140129
  62. TANTUM (BENZYDAMINE HYDROCHLORIDE) [Concomitant]
     Route: 048
     Dates: start: 20140602, end: 20140614
  63. LAPILORI [Concomitant]
     Route: 048
     Dates: start: 20140126, end: 20140126
  64. ERCEFURYL [Concomitant]
     Active Substance: NIFUROXAZIDE
     Route: 048
     Dates: start: 20141203, end: 20141209
  65. OBINUTUZUMAB [Suspect]
     Active Substance: OBINUTUZUMAB
     Route: 042
     Dates: start: 20140527, end: 20140527
  66. FLUDARABINE [Suspect]
     Active Substance: FLUDARABINE PHOSPHATE
     Route: 042
     Dates: start: 20140416, end: 20140416
  67. FLUDARABINE [Suspect]
     Active Substance: FLUDARABINE PHOSPHATE
     Route: 042
     Dates: start: 20140528, end: 20140528
  68. CYCLOPHOSPHAMIDE. [Suspect]
     Active Substance: CYCLOPHOSPHAMIDE
     Route: 042
     Dates: start: 20140219, end: 20140219
  69. NATEGLINIDE. [Concomitant]
     Active Substance: NATEGLINIDE
     Indication: DIABETES MELLITUS
     Route: 048
     Dates: start: 2009, end: 20140509
  70. DEKORT [Concomitant]
     Active Substance: DEXAMETHASONE
     Route: 042
     Dates: start: 20140416, end: 20140416
  71. ULCURAN [Concomitant]
     Route: 042
     Dates: start: 20140205, end: 20140205
  72. DEGASTROL [Concomitant]
     Indication: PROPHYLAXIS
     Route: 048
     Dates: start: 20140610
  73. KYTRIL [Concomitant]
     Active Substance: GRANISETRON HYDROCHLORIDE
     Route: 042
     Dates: start: 20140123, end: 20140123
  74. KYTRIL [Concomitant]
     Active Substance: GRANISETRON HYDROCHLORIDE
     Route: 042
     Dates: start: 20140530, end: 20140530
  75. KYTRIL [Concomitant]
     Active Substance: GRANISETRON HYDROCHLORIDE
     Route: 048
     Dates: start: 20140123, end: 20140123
  76. KYTRIL [Concomitant]
     Active Substance: GRANISETRON HYDROCHLORIDE
     Route: 048
     Dates: start: 20140205, end: 20140205
  77. KYTRIL [Concomitant]
     Active Substance: GRANISETRON HYDROCHLORIDE
     Route: 048
     Dates: start: 20140219, end: 20140219
  78. KYTRIL [Concomitant]
     Active Substance: GRANISETRON HYDROCHLORIDE
     Route: 048
     Dates: start: 20140319, end: 20140319
  79. LASIX [Concomitant]
     Active Substance: FUROSEMIDE
     Route: 042
     Dates: start: 20140125, end: 20140125
  80. XENETIX [Concomitant]
     Active Substance: IOBITRIDOL
     Route: 042
     Dates: start: 20150223, end: 20150223
  81. NEURICA [Concomitant]
     Route: 048
     Dates: start: 20150523, end: 20150609
  82. BUSCOPAN [Concomitant]
     Active Substance: BUTYLSCOPOLAMINE BROMIDE
     Route: 048
     Dates: start: 20141203, end: 20141209
  83. NIDAZOL [Concomitant]
     Route: 048
     Dates: start: 20141203, end: 20141209
  84. FLUDARABINE [Suspect]
     Active Substance: FLUDARABINE PHOSPHATE
     Route: 042
     Dates: start: 20140123, end: 20140123
  85. FLUDARABINE [Suspect]
     Active Substance: FLUDARABINE PHOSPHATE
     Route: 042
     Dates: start: 20140220, end: 20140220
  86. FLUDARABINE [Suspect]
     Active Substance: FLUDARABINE PHOSPHATE
     Route: 042
     Dates: start: 20140319, end: 20140319
  87. CYCLOPHOSPHAMIDE. [Suspect]
     Active Substance: CYCLOPHOSPHAMIDE
     Route: 042
     Dates: start: 20140221, end: 20140221
  88. CYCLOPHOSPHAMIDE. [Suspect]
     Active Substance: CYCLOPHOSPHAMIDE
     Route: 042
     Dates: start: 20140417, end: 20140417
  89. CYCLOPHOSPHAMIDE. [Suspect]
     Active Substance: CYCLOPHOSPHAMIDE
     Route: 042
     Dates: start: 20140528, end: 20140528
  90. CYCLOPHOSPHAMIDE. [Suspect]
     Active Substance: CYCLOPHOSPHAMIDE
     Route: 042
     Dates: start: 20140626, end: 20140626
  91. PERFALGAN [Concomitant]
     Active Substance: ACETAMINOPHEN
     Route: 042
     Dates: start: 20140205, end: 20140205
  92. PERFALGAN [Concomitant]
     Active Substance: ACETAMINOPHEN
     Route: 042
     Dates: start: 20140416, end: 20140416
  93. DEKORT [Concomitant]
     Active Substance: DEXAMETHASONE
     Route: 042
     Dates: start: 20140129, end: 20140129
  94. ULCURAN [Concomitant]
     Route: 042
     Dates: start: 20140319, end: 20140319
  95. KYTRIL [Concomitant]
     Active Substance: GRANISETRON HYDROCHLORIDE
     Route: 048
     Dates: start: 20140416, end: 20140416
  96. PRIMPERAN [Concomitant]
     Active Substance: METOCLOPRAMIDE HYDROCHLORIDE
     Indication: PROPHYLAXIS
     Route: 042
     Dates: start: 20140125, end: 20140126
  97. NORVASC [Concomitant]
     Active Substance: AMLODIPINE BESYLATE
     Route: 048
     Dates: start: 20140125, end: 20140125
  98. XENETIX [Concomitant]
     Active Substance: IOBITRIDOL
     Route: 042
     Dates: start: 20140925, end: 20140925
  99. OMNIPAQUE [Concomitant]
     Active Substance: IOHEXOL
     Dosage: 100 ML, SINGLE DOSE
     Route: 042
     Dates: start: 20150504, end: 20150504
  100. PAROL [Concomitant]
     Active Substance: ACETAMINOPHEN
     Route: 048
     Dates: start: 20141231, end: 20150106
  101. OBINUTUZUMAB [Suspect]
     Active Substance: OBINUTUZUMAB
     Route: 042
     Dates: start: 20140205, end: 20140205
  102. OBINUTUZUMAB [Suspect]
     Active Substance: OBINUTUZUMAB
     Route: 042
     Dates: start: 20140319, end: 20140319
  103. FLUDARABINE [Suspect]
     Active Substance: FLUDARABINE PHOSPHATE
     Route: 042
     Dates: start: 20140221, end: 20140221
  104. CYCLOPHOSPHAMIDE. [Suspect]
     Active Substance: CYCLOPHOSPHAMIDE
     Route: 042
     Dates: start: 20140321, end: 20140321
  105. CYCLOPHOSPHAMIDE. [Suspect]
     Active Substance: CYCLOPHOSPHAMIDE
     Route: 042
     Dates: start: 20140418, end: 20140418
  106. PERFALGAN [Concomitant]
     Active Substance: ACETAMINOPHEN
     Indication: PROPHYLAXIS
     Route: 042
     Dates: start: 20140122, end: 20140122
  107. DEKORT [Concomitant]
     Active Substance: DEXAMETHASONE
     Route: 042
     Dates: start: 20140205, end: 20140205
  108. ULCURAN [Concomitant]
     Route: 042
     Dates: start: 20140219, end: 20140219
  109. ULCURAN [Concomitant]
     Route: 042
     Dates: start: 20140527, end: 20140527
  110. AVIL [Concomitant]
     Active Substance: PHENIRAMINE
     Route: 042
     Dates: start: 20140319, end: 20140319
  111. AVIL [Concomitant]
     Active Substance: PHENIRAMINE
     Route: 042
     Dates: start: 20140527, end: 20140527
  112. KYTRIL [Concomitant]
     Active Substance: GRANISETRON HYDROCHLORIDE
     Route: 042
     Dates: start: 20140319, end: 20140319
  113. KYTRIL [Concomitant]
     Active Substance: GRANISETRON HYDROCHLORIDE
     Route: 042
     Dates: start: 20140527, end: 20140527
  114. FAMODINE [Concomitant]
     Active Substance: FAMOTIDINE
     Indication: PROPHYLAXIS
     Route: 048
     Dates: start: 20140124, end: 20140129
  115. NOVORAPID [Concomitant]
     Active Substance: INSULIN ASPART
     Dosage: 6 UNITE
     Route: 030
     Dates: start: 20140127, end: 20140127
  116. URIKOLIZ [Concomitant]
     Active Substance: ALLOPURINOL
     Route: 048
     Dates: start: 20140128, end: 20140129
  117. MIKOSTATIN [Concomitant]
     Active Substance: NYSTATIN
     Route: 048
     Dates: start: 20140509, end: 20140522
  118. DIAMICRON [Concomitant]
     Active Substance: GLICLAZIDE
     Indication: DIABETES MELLITUS
     Route: 048
     Dates: start: 20140509
  119. ZALDIAR [Concomitant]
     Active Substance: ACETAMINOPHEN\TRAMADOL HYDROCHLORIDE
     Route: 065
     Dates: start: 20150529, end: 20150619
  120. OSMOLAX (LACTULOSE) [Concomitant]
  121. ERYTHROCYTE TRANSFUSIONS [Concomitant]
     Dosage: 2 UNITS. SINGLE DOSE
     Route: 042
     Dates: start: 20170420, end: 20170420
  122. OBINUTUZUMAB [Suspect]
     Active Substance: OBINUTUZUMAB
     Route: 042
     Dates: start: 20140123, end: 20140123
  123. OBINUTUZUMAB [Suspect]
     Active Substance: OBINUTUZUMAB
     Route: 042
     Dates: start: 20140129, end: 20140129
  124. OBINUTUZUMAB [Suspect]
     Active Substance: OBINUTUZUMAB
     Route: 042
     Dates: start: 20140416, end: 20140416
  125. FLUDARABINE [Suspect]
     Active Substance: FLUDARABINE PHOSPHATE
     Indication: CHRONIC LYMPHOCYTIC LEUKAEMIA
     Route: 042
     Dates: start: 20140122, end: 20140122
  126. FLUDARABINE [Suspect]
     Active Substance: FLUDARABINE PHOSPHATE
     Route: 042
     Dates: start: 20140124, end: 20140124
  127. FLUDARABINE [Suspect]
     Active Substance: FLUDARABINE PHOSPHATE
     Route: 042
     Dates: start: 20140626, end: 20140626
  128. CYCLOPHOSPHAMIDE. [Suspect]
     Active Substance: CYCLOPHOSPHAMIDE
     Route: 042
     Dates: start: 20140220, end: 20140220
  129. CYCLOPHOSPHAMIDE. [Suspect]
     Active Substance: CYCLOPHOSPHAMIDE
     Route: 042
     Dates: start: 20140416, end: 20140416
  130. CYCLOPHOSPHAMIDE. [Suspect]
     Active Substance: CYCLOPHOSPHAMIDE
     Route: 042
     Dates: start: 20140527, end: 20140527
  131. CYCLOPHOSPHAMIDE. [Suspect]
     Active Substance: CYCLOPHOSPHAMIDE
     Route: 042
     Dates: start: 20140625, end: 20140625
  132. GLIFOR [Concomitant]
     Active Substance: METFORMIN HYDROCHLORIDE
     Indication: DIABETES MELLITUS
     Route: 048
     Dates: start: 2009
  133. PERFALGAN [Concomitant]
     Active Substance: ACETAMINOPHEN
     Route: 042
     Dates: start: 20140219, end: 20140219
  134. PERFALGAN [Concomitant]
     Active Substance: ACETAMINOPHEN
     Route: 042
     Dates: start: 20140527, end: 20140527
  135. DEKORT [Concomitant]
     Active Substance: DEXAMETHASONE
     Indication: PROPHYLAXIS
     Route: 042
     Dates: start: 20140122, end: 20140122
  136. DEKORT [Concomitant]
     Active Substance: DEXAMETHASONE
     Route: 042
     Dates: start: 20140219, end: 20140219
  137. DEKORT [Concomitant]
     Active Substance: DEXAMETHASONE
     Route: 042
     Dates: start: 20140624, end: 20140624
  138. AVIL [Concomitant]
     Active Substance: PHENIRAMINE
     Route: 042
     Dates: start: 20140205, end: 20140205
  139. RAMIPRIL. [Concomitant]
     Active Substance: RAMIPRIL
     Indication: CORONARY ARTERY DISEASE
     Route: 048
     Dates: start: 2006
  140. KYTRIL [Concomitant]
     Active Substance: GRANISETRON HYDROCHLORIDE
     Route: 042
     Dates: start: 20140129, end: 20140129
  141. KYTRIL [Concomitant]
     Active Substance: GRANISETRON HYDROCHLORIDE
     Route: 048
     Dates: start: 20140122, end: 20140122
  142. EMETRIL [Concomitant]
     Route: 042
     Dates: start: 20140126, end: 20140126
  143. TANTUM (BENZYDAMINE HYDROCHLORIDE) [Concomitant]
     Route: 048
     Dates: start: 20140509, end: 20140522
  144. XENETIX [Concomitant]
     Active Substance: IOBITRIDOL
     Indication: SUPPLEMENTATION THERAPY
     Route: 042
     Dates: start: 20140109, end: 20140109
  145. XENETIX [Concomitant]
     Active Substance: IOBITRIDOL
     Route: 042
     Dates: start: 20140416, end: 20140416
  146. XENETIX [Concomitant]
     Active Substance: IOBITRIDOL
     Route: 042
     Dates: start: 20140805, end: 20140805
  147. VALTREX [Concomitant]
     Active Substance: VALACYCLOVIR HYDROCHLORIDE
     Route: 048
     Dates: start: 20150527, end: 20150606
  148. LANTUS SOLOSTAR [Concomitant]
     Active Substance: INSULIN GLARGINE
     Route: 030
     Dates: start: 20140124, end: 20140129

REACTIONS (6)
  - Oropharyngeal pain [Recovered/Resolved]
  - Neutropenia [Recovered/Resolved]
  - Anaemia [Recovered/Resolved]
  - Febrile neutropenia [Recovered/Resolved]
  - Febrile neutropenia [Recovered/Resolved]
  - Thrombocytopenia [Recovered/Resolved]

NARRATIVE: CASE EVENT DATE: 20140123
